FAERS Safety Report 6643044-1 (Version None)
Quarter: 2010Q1

REPORT INFORMATION
  Report Type: 
  Country: None (occurrence: None)
  Receive Date: 20100319
  Receipt Date: 20100315
  Transmission Date: 20100710
  Serious: Yes (Hospitalization)
  Sender: FDA-Public Use
  Company Number: D0066887A

PATIENT
  Age: 7 Year
  Sex: Male
  Weight: 25 kg

DRUGS (1)
  1. VIANI MITE [Suspect]
     Route: 055

REACTIONS (4)
  - NAUSEA [None]
  - OVERDOSE [None]
  - TACHYCARDIA [None]
  - VOMITING [None]
